FAERS Safety Report 18068091 (Version 5)
Quarter: 2020Q3

REPORT INFORMATION
  Report Type: Spontaneous
  Country: US (occurrence: US)
  Receive Date: 20200724
  Receipt Date: 20200820
  Transmission Date: 20201103
  Serious: Yes (Hospitalization)
  Sender: FDA-Public Use
  Company Number: US-ACTELION-A-US2020-207537

PATIENT
  Sex: Female
  Weight: 63.04 kg

DRUGS (1)
  1. VENTAVIS [Suspect]
     Active Substance: ILOPROST
     Indication: PULMONARY ARTERIAL HYPERTENSION
     Dosage: 5.0MCG INHALED 6 TO 9 TIMES PER DAY
     Route: 055

REACTIONS (9)
  - Dyspnoea [Unknown]
  - Oedema peripheral [Unknown]
  - Pain in extremity [Unknown]
  - Asthenia [Unknown]
  - Treatment noncompliance [Unknown]
  - Malaise [Unknown]
  - Rales [Unknown]
  - Dysuria [Unknown]
  - Hospitalisation [Unknown]
